FAERS Safety Report 7163930-6 (Version None)
Quarter: 2010Q4

REPORT INFORMATION
  Report Type: 
  Country: None (occurrence: None)
  Receive Date: 20101210
  Receipt Date: 20101210
  Transmission Date: 20110411
  Serious: Yes (Death, Hospitalization)
  Sender: FDA-Public Use
  Company Number: None

PATIENT
  Sex: Female
  Weight: 82 kg

DRUGS (14)
  1. CYTARABINE [Suspect]
     Dosage: 84540 MG
  2. DAUNORUBICIN [Suspect]
     Dosage: 570 MG
  3. ETOPOSIDE [Suspect]
     Dosage: 3300 MG
  4. L-ASPARAGINASE [Suspect]
     Dosage: 2200 MG
  5. MITOXANTRONE HYDROCHLORIDE [Suspect]
     Dosage: 88 MG
  6. BACTRIM [Concomitant]
  7. FLUCONAZOLE [Concomitant]
  8. IMIMPENEM [Concomitant]
  9. MAXIPIME [Concomitant]
  10. MIRALAX [Concomitant]
  11. PENTAMIDINE ISETHIONATE [Concomitant]
  12. VFEND [Concomitant]
  13. VORICONAZOLE [Concomitant]
  14. ZYVOX [Concomitant]

REACTIONS (8)
  - BLOOD CULTURE POSITIVE [None]
  - CONSTIPATION [None]
  - FALL [None]
  - HYPOTENSION [None]
  - JOINT INJURY [None]
  - MULTI-ORGAN FAILURE [None]
  - PAIN [None]
  - SEPTIC SHOCK [None]
